FAERS Safety Report 17864818 (Version 1)
Quarter: 2020Q2

REPORT INFORMATION
  Report Type: Spontaneous
  Country: NO (occurrence: NO)
  Receive Date: 20200605
  Receipt Date: 20200605
  Transmission Date: 20200714
  Serious: Yes (Hospitalization, Other)
  Sender: FDA-Public Use
  Company Number: NO-BRISTOL-MYERS SQUIBB COMPANY-BMS-2020-043083

PATIENT
  Age: 67 Year
  Sex: Male

DRUGS (6)
  1. PLAVIX [Suspect]
     Active Substance: CLOPIDOGREL BISULFATE
     Indication: MYOCARDIAL INFARCTION
     Dosage: 300 MILLIGRAM, PER DAY
     Route: 048
     Dates: start: 20191119, end: 20191123
  2. BRILIQUE [Suspect]
     Active Substance: TICAGRELOR
     Indication: WRONG PRODUCT ADMINISTERED
     Dosage: UNKNOWN DOSAGE (ADMINISTERED BY MISTAKE)
     Route: 048
     Dates: start: 20191121, end: 20191121
  3. HEPARIN [Suspect]
     Active Substance: HEPARIN SODIUM
     Indication: PRODUCT USED FOR UNKNOWN INDICATION
     Dosage: 5000 INTERNATIONAL UNIT
     Route: 041
     Dates: start: 20191122, end: 20191122
  4. KLEXANE [Suspect]
     Active Substance: ENOXAPARIN
     Indication: PRODUCT USED FOR UNKNOWN INDICATION
     Dosage: 40 MILLIGRAM
     Route: 058
     Dates: start: 20191122, end: 20191122
  5. ALBYL-E [Suspect]
     Active Substance: ASPIRIN\MAGNESIUM OXIDE
     Indication: MYOCARDIAL INFARCTION
     Dosage: 75 MILLIGRAM, PER DAY
     Route: 048
     Dates: start: 20191119, end: 20191123
  6. ELIQUIS [Suspect]
     Active Substance: APIXABAN
     Indication: CEREBROVASCULAR ACCIDENT PROPHYLAXIS
     Dosage: 5 MILLIGRAM, PER DAY
     Route: 048
     Dates: start: 20191119, end: 20191121

REACTIONS (2)
  - Subarachnoid haemorrhage [Recovering/Resolving]
  - Endocarditis [Unknown]

NARRATIVE: CASE EVENT DATE: 20191123
